FAERS Safety Report 9708450 (Version 2)
Quarter: 2014Q1

REPORT INFORMATION
  Report Type: Spontaneous
  Country: BR (occurrence: BR)
  Receive Date: 20131125
  Receipt Date: 20140225
  Transmission Date: 20141002
  Serious: Yes (Other)
  Sender: FDA-Public Use
  Company Number: BR-PFIZER INC-2013334440

PATIENT
  Sex: Female

DRUGS (8)
  1. ATENOLOL [Suspect]
     Indication: ARRHYTHMIA
     Dosage: 25 MG, 2X/DAY
     Route: 048
  2. ROSUVASTATIN CALCIUM [Suspect]
     Indication: BLOOD CHOLESTEROL INCREASED
     Dosage: 10 MG, UNK
     Route: 048
  3. CIMZIA [Suspect]
     Indication: RHEUMATOID ARTHRITIS
     Dosage: 200 MG/ML 2 SYRINGES/EVERY 2 WEEKS
     Route: 065
     Dates: start: 201310, end: 201311
  4. CIMZIA [Suspect]
     Indication: OSTEOARTHRITIS
  5. CLORANA [Suspect]
     Indication: HYPERTENSION
     Dosage: 25 MG, DAILY
     Route: 065
  6. ENALAPRIL MALEATE [Concomitant]
     Indication: HYPERTENSION
     Dosage: UNK
     Route: 065
  7. MAREVAN [Concomitant]
     Indication: ANTICOAGULANT THERAPY
     Dosage: UNK
     Route: 065
  8. PREDNISONE [Concomitant]
     Dosage: UNK
     Route: 065

REACTIONS (5)
  - Haemorrhage [Recovered/Resolved]
  - Diarrhoea haemorrhagic [Recovered/Resolved]
  - Pain [Recovered/Resolved]
  - Blood pressure decreased [Recovered/Resolved]
  - Off label use [Not Recovered/Not Resolved]
